FAERS Safety Report 5884018-8 (Version None)
Quarter: 2008Q3

REPORT INFORMATION
  Report Type: 
  Country: None (occurrence: None)
  Receive Date: 20080912
  Receipt Date: 20080912
  Transmission Date: 20090109
  Serious: No
  Sender: FDA-Public Use
  Company Number: None

PATIENT
  Age: 54 Year
  Sex: Female

DRUGS (2)
  1. CIPROFLOXACIN [Suspect]
     Indication: ANTIBIOTIC PROPHYLAXIS
     Dosage: 400 MG ONE TIME OVER 1 HR  IV DRIP
     Route: 041
     Dates: start: 20080910, end: 20080910
  2. SODIUM CHLORIDE 0.9% [Suspect]
     Indication: MEDICATION DILUTION
     Dosage: 250 ML  ONE TIME OVER 1 HR  IV DRIP
     Route: 041
     Dates: start: 20080910, end: 20080910

REACTIONS (2)
  - INJECTION SITE ERYTHEMA [None]
  - INJECTION SITE PRURITUS [None]
